FAERS Safety Report 5899262-3 (Version None)
Quarter: 2008Q3

REPORT INFORMATION
  Report Type: 
  Country: None (occurrence: None)
  Receive Date: 20080828
  Receipt Date: 20071015
  Transmission Date: 20090109
  Serious: Yes (Hospitalization)
  Sender: FDA-Public Use
  Company Number: CIP07002031

PATIENT
  Sex: Female

DRUGS (1)
  1. ASACOL [Suspect]
     Dosage: ORAL
     Route: 048

REACTIONS (2)
  - COLITIS ULCERATIVE [None]
  - MEDICATION RESIDUE [None]
